FAERS Safety Report 19141134 (Version 1)
Quarter: 2021Q2

REPORT INFORMATION
  Report Type: Spontaneous
  Country: CA (occurrence: CA)
  Receive Date: 20210415
  Receipt Date: 20210415
  Transmission Date: 20210717
  Serious: Yes (Hospitalization)
  Sender: FDA-Public Use
  Company Number: CA-SAMSUNG BIOEPIS-SB-2021-09267

PATIENT
  Age: 34 Year
  Sex: Male

DRUGS (1)
  1. INFLIXIMAB [Suspect]
     Active Substance: INFLIXIMAB
     Indication: COLITIS ULCERATIVE
     Route: 042

REACTIONS (4)
  - Anti-myelin-associated glycoprotein antibodies positive [Unknown]
  - Hemianopia homonymous [Recovering/Resolving]
  - Encephalitis [Recovered/Resolved]
  - Generalised tonic-clonic seizure [Recovered/Resolved]
